FAERS Safety Report 8797540 (Version 1)
Quarter: 2012Q4

REPORT INFORMATION
  Report Type: 
  Country: US (occurrence: US)
  Receive Date: 20120919
  Receipt Date: 20120919
  Transmission Date: 20130627
  Serious: Yes (Hospitalization)
  Sender: FDA-Public Use
  Company Number: US-MERCK-1209USA005716

PATIENT
  Age: 32 Year
  Sex: Female

DRUGS (1)
  1. SAPHRIS [Suspect]
     Dosage: 1 DF, UNK
     Route: 060

REACTIONS (10)
  - Constipation [Unknown]
  - Dizziness [Unknown]
  - Confusional state [Unknown]
  - Tremor [Unknown]
  - Syncope [Unknown]
  - Disorientation [Unknown]
  - Hangover [Unknown]
  - Feeling cold [Unknown]
  - Thirst [Unknown]
  - Mydriasis [Unknown]
